FAERS Safety Report 5144305-8 (Version None)
Quarter: 2006Q4

REPORT INFORMATION
  Report Type: 
  Country: None (occurrence: None)
  Receive Date: 20061030
  Receipt Date: 20061025
  Transmission Date: 20070319
  Serious: Yes (Death)
  Sender: FDA-Public Use
  Company Number: 163-20785-06091244

PATIENT
  Age: 79 Year
  Sex: Male

DRUGS (1)
  1. THALOMID [Suspect]
     Indication: MULTIPLE MYELOMA
     Dosage: 200 MG DAILY, ORAL
     Route: 048
     Dates: start: 20060518, end: 20060801

REACTIONS (6)
  - ASTHENIA [None]
  - CARDIAC FAILURE CONGESTIVE [None]
  - DISEASE PROGRESSION [None]
  - DIZZINESS [None]
  - FAILURE TO THRIVE [None]
  - PNEUMONIA [None]
